FAERS Safety Report 4359743-0 (Version None)
Quarter: 2004Q2

REPORT INFORMATION
  Report Type: 
  Country: None (occurrence: None)
  Receive Date: 20040518
  Receipt Date: 20040508
  Transmission Date: 20050107
  Serious: Yes (Other)
  Sender: FDA-Public Use
  Company Number: US-MERCK-0405USA00594

PATIENT
  Sex: Female

DRUGS (5)
  1. EMEND [Suspect]
     Route: 048
     Dates: start: 20040401
  2. CYTOXAN [Concomitant]
     Route: 065
  3. EPIRUBICIN HYDROCHLORIDE [Concomitant]
     Route: 065
  4. FLUOROURACIL [Concomitant]
     Route: 065
  5. DILANTIN [Concomitant]
     Route: 065

REACTIONS (2)
  - ANTICONVULSANT DRUG LEVEL BELOW THERAPEUTIC [None]
  - GRAND MAL CONVULSION [None]
